FAERS Safety Report 6136932-6 (Version None)
Quarter: 2009Q1

REPORT INFORMATION
  Report Type: 
  Country: None (occurrence: None)
  Receive Date: 20090330
  Receipt Date: 20090324
  Transmission Date: 20090719
  Serious: Yes (Hospitalization)
  Sender: FDA-Public Use
  Company Number: CA-PFIZER INC-2009163219

PATIENT

DRUGS (3)
  1. CHAMPIX [Suspect]
     Dosage: UNKNOWN
  2. CRESTOR [Concomitant]
     Dosage: UNKNOWN
  3. PERINDOPRIL ERBUMINE [Concomitant]
     Dosage: UNKNOWN

REACTIONS (1)
  - DYSKINESIA [None]
